FAERS Safety Report 16524614 (Version 2)
Quarter: 2019Q3

REPORT INFORMATION
  Report Type: Spontaneous
  Country: US (occurrence: US)
  Receive Date: 20190703
  Receipt Date: 20190731
  Transmission Date: 20191004
  Serious: Yes (Hospitalization)
  Sender: FDA-Public Use
  Company Number: US-VERTEX PHARMACEUTICALS-2019-006052

PATIENT
  Age: 4 Year
  Sex: Male

DRUGS (9)
  1. ZANTAC [Concomitant]
     Active Substance: RANITIDINE HYDROCHLORIDE
  2. CREON [Concomitant]
     Active Substance: PANCRELIPASE AMYLASE\PANCRELIPASE LIPASE\PANCRELIPASE PROTEASE
  3. PROAIR HFA [Concomitant]
     Active Substance: ALBUTEROL SULFATE
  4. ORKAMBI [Suspect]
     Active Substance: IVACAFTOR\LUMACAFTOR
     Indication: CYSTIC FIBROSIS
     Dosage: 1 PACKET, BID
     Route: 048
     Dates: start: 20180927
  5. KITABIS PAK [Concomitant]
     Active Substance: TOBRAMYCIN
     Route: 055
  6. PULMOZYME [Concomitant]
     Active Substance: DORNASE ALFA
  7. HYPERSAL [Concomitant]
     Active Substance: SODIUM CHLORIDE
  8. OMNIPRED [Concomitant]
     Active Substance: PREDNISOLONE ACETATE
  9. VENTOLIN HFA [Concomitant]
     Active Substance: ALBUTEROL SULFATE

REACTIONS (2)
  - Adenoidectomy [Unknown]
  - Myringotomy [Unknown]

NARRATIVE: CASE EVENT DATE: 20190621
